FAERS Safety Report 19111466 (Version 1)
Quarter: 2021Q2

REPORT INFORMATION
  Report Type: Spontaneous
  Country: US (occurrence: US)
  Receive Date: 20210409
  Receipt Date: 20210409
  Transmission Date: 20210717
  Serious: Yes (Other)
  Sender: FDA-Public Use
  Company Number: US-IGSA-BIG0013526

PATIENT
  Age: 72 Year
  Sex: Male
  Weight: 101 kg

DRUGS (1)
  1. GAMUNEX?C [Suspect]
     Active Substance: HUMAN IMMUNOGLOBULIN G
     Indication: CHRONIC INFLAMMATORY DEMYELINATING POLYRADICULONEUROPATHY
     Dosage: 80 GRAM, TOTAL
     Route: 042
     Dates: start: 20210224, end: 20210224

REACTIONS (6)
  - Urticaria [Recovered/Resolved]
  - Cold sweat [Recovered/Resolved]
  - Rash [Recovered/Resolved]
  - Pallor [Recovered/Resolved]
  - Blood pressure decreased [Recovered/Resolved]
  - Feeling cold [Recovered/Resolved]

NARRATIVE: CASE EVENT DATE: 20210224
